FAERS Safety Report 7783264-6 (Version None)
Quarter: 2011Q3

REPORT INFORMATION
  Report Type: 
  Country: None (occurrence: None)
  Receive Date: 20110928
  Receipt Date: 20110916
  Transmission Date: 20111222
  Serious: Yes (Life-Threatening, Hospitalization, Other)
  Sender: FDA-Public Use
  Company Number: DE-JNJFOC-20110809823

PATIENT
  Age: 68 Year
  Sex: Female

DRUGS (17)
  1. REMICADE [Suspect]
     Indication: RHEUMATOID ARTHRITIS
     Dosage: 4 INFUSIONS ON UNSPECIFIED DATES
     Route: 042
     Dates: start: 20101201, end: 20110606
  2. HYDROCHLOROTHIAZIDE [Concomitant]
     Route: 065
  3. METHOTREXATE [Concomitant]
     Route: 065
     Dates: start: 20100701, end: 20110718
  4. PREDNISONE [Concomitant]
     Indication: ANTIINFLAMMATORY THERAPY
     Route: 065
     Dates: start: 20101101
  5. PREDNISONE [Concomitant]
     Indication: PSYCHOMOTOR HYPERACTIVITY
     Route: 065
     Dates: start: 20101101
  6. REMICADE [Suspect]
     Indication: SPONDYLITIS
     Dosage: FIFTH INFUSION
     Route: 042
     Dates: start: 20110606, end: 20110606
  7. REMICADE [Suspect]
     Dosage: 4 INFUSIONS ON UNSPECIFIED DATES
     Route: 042
     Dates: start: 20101201, end: 20110606
  8. METHOTREXATE [Suspect]
     Indication: SPONDYLITIS
     Route: 065
     Dates: start: 20100701, end: 20110718
  9. METHOTREXATE [Suspect]
     Indication: RHEUMATOID ARTHRITIS
     Route: 065
     Dates: start: 20100701, end: 20110718
  10. HYDROMORPHONE HCL [Concomitant]
     Route: 065
  11. DIGITOXIN TAB [Concomitant]
     Route: 065
  12. IBUPROFEN [Concomitant]
     Route: 065
  13. ARLEVERT [Concomitant]
     Route: 065
  14. REMICADE [Suspect]
     Dosage: FIFTH INFUSION
     Route: 042
     Dates: start: 20110606, end: 20110606
  15. XIPAMID [Concomitant]
     Dosage: 1-0-1/2
     Route: 065
  16. METAMIZOLE [Concomitant]
     Route: 065
  17. RAMIPRIL [Concomitant]
     Route: 065

REACTIONS (10)
  - RASH [None]
  - LIVER DISORDER [None]
  - BONE MARROW FAILURE [None]
  - VERTIGO [None]
  - RHEUMATOID ARTHRITIS [None]
  - HEPATIC ENCEPHALOPATHY [None]
  - PANCYTOPENIA [None]
  - URINARY TRACT INFECTION [None]
  - RENAL FAILURE ACUTE [None]
  - STOMATITIS [None]
